FAERS Safety Report 9880654 (Version 2)
Quarter: 2014Q1

REPORT INFORMATION
  Report Type: Spontaneous
  Country: GB (occurrence: None)
  Receive Date: 20140205
  Receipt Date: 20140318
  Transmission Date: 20141002
  Serious: Yes (Other)
  Sender: FDA-Public Use
  Company Number: AUR-APL-2014-01174

PATIENT
  Age: 38 Year
  Sex: Female
  Weight: 72 kg

DRUGS (1)
  1. RANITIDINE (RANITIDINE) [Suspect]
     Indication: GASTROOESOPHAGEAL REFLUX DISEASE
     Dosage: (150 MG), UNKNOWN
     Route: 048
     Dates: start: 20140109

REACTIONS (5)
  - Oral pain [None]
  - Local swelling [None]
  - Lip swelling [None]
  - Pharyngeal oedema [None]
  - Paraesthesia [None]
